FAERS Safety Report 24825636 (Version 1)
Quarter: 2025Q1

REPORT INFORMATION
  Report Type: Spontaneous
  Country: US (occurrence: US)
  Receive Date: 20250109
  Receipt Date: 20250109
  Transmission Date: 20250409
  Serious: No
  Sender: FRESENIUS KABI
  Company Number: US-FreseniusKabi-FK202419592

PATIENT
  Age: 29 Year
  Sex: Female

DRUGS (1)
  1. AZITHROMYCIN ANHYDROUS [Suspect]
     Active Substance: AZITHROMYCIN ANHYDROUS
     Indication: Product used for unknown indication
     Dosage: INJECTION?UPPER RIGHT BUTTOCK ONCE?ROA: INTRAMUSCULAR
     Dates: start: 20241227, end: 20241227

REACTIONS (2)
  - Incorrect route of product administration [Unknown]
  - Administration site cellulitis [Unknown]

NARRATIVE: CASE EVENT DATE: 20241229
